FAERS Safety Report 9222637 (Version 1)
Quarter: 2013Q2

REPORT INFORMATION
  Report Type: Report from Study
  Country: CA (occurrence: CA)
  Receive Date: 20130410
  Receipt Date: 20130410
  Transmission Date: 20140414
  Serious: Yes (Death, Other)
  Sender: FDA-Public Use
  Company Number: CA-ROCHE-1208822

PATIENT
  Age: 36 Year
  Sex: 0

DRUGS (1)
  1. ALTEPLASE [Suspect]
     Indication: ISCHAEMIC STROKE
     Route: 042

REACTIONS (5)
  - Cerebral infarction [Fatal]
  - Infection [Fatal]
  - Cardiac death [Fatal]
  - Haemorrhage intracranial [Unknown]
  - Angioedema [Unknown]
